FAERS Safety Report 7463673-5 (Version None)
Quarter: 2011Q2

REPORT INFORMATION
  Report Type: 
  Country: None (occurrence: None)
  Receive Date: 20110506
  Receipt Date: 20110428
  Transmission Date: 20111010
  Serious: Yes (Hospitalization)
  Sender: FDA-Public Use
  Company Number: FR-MERCK-1104FRA00157

PATIENT
  Age: 63 Year
  Sex: Male

DRUGS (5)
  1. HYDROCORTISONE [Concomitant]
     Route: 048
  2. TESTOSTERONE ENANTHATE [Concomitant]
     Indication: HYPOPITUITARISM
     Route: 030
  3. ZOCOR [Suspect]
     Indication: HYPERCHOLESTEROLAEMIA
     Route: 048
     Dates: start: 20090101, end: 20100101
  4. ROSUVASTATIN CALCIUM [Suspect]
     Indication: HYPERCHOLESTEROLAEMIA
     Route: 048
     Dates: start: 20100101, end: 20100120
  5. LEVOTHYROXINE SODIUM [Concomitant]
     Indication: HYPOPITUITARISM
     Route: 048

REACTIONS (3)
  - LIPASE INCREASED [None]
  - VOMITING [None]
  - TRANSAMINASES INCREASED [None]
